FAERS Safety Report 6699930-X (Version None)
Quarter: 2010Q2

REPORT INFORMATION
  Report Type: 
  Country: None (occurrence: None)
  Receive Date: 20100428
  Receipt Date: 20100415
  Transmission Date: 20101027
  Serious: Yes (Hospitalization, Other)
  Sender: FDA-Public Use
  Company Number: PHHY2010GB25981

PATIENT
  Sex: Male

DRUGS (2)
  1. CLOZARIL [Suspect]
     Indication: SCHIZOPHRENIA
     Dosage: UNK
     Dates: start: 20040405, end: 20100406
  2. CLOZARIL [Suspect]
     Dosage: UNK
     Dates: start: 20100414

REACTIONS (3)
  - DEHYDRATION [None]
  - MALAISE [None]
  - RENAL FAILURE ACUTE [None]
